FAERS Safety Report 4378134-X (Version None)
Quarter: 2004Q2

REPORT INFORMATION
  Report Type: 
  Country: None (occurrence: None)
  Receive Date: 20040616
  Receipt Date: 20040214
  Transmission Date: 20050107
  Serious: Yes (Hospitalization)
  Sender: FDA-Public Use
  Company Number: PE-BRISTOL-MYERS SQUIBB COMPANY-12508289

PATIENT
  Age: 50 Year
  Sex: Female

DRUGS (9)
  1. BLINDED: ABATACEPT [Concomitant]
     Indication: RHEUMATOID ARTHRITIS
     Route: 042
     Dates: start: 20030514
  2. BLINDED: PLACEBO [Suspect]
     Indication: RHEUMATOID ARTHRITIS
     Route: 042
     Dates: start: 20030514
  3. METHOTREXATE [Suspect]
     Route: 048
     Dates: start: 20030104
  4. PREDNISONE [Concomitant]
     Dates: start: 20021201, end: 20040214
  5. CYCLOBENZAPRINE [Concomitant]
     Dates: start: 20031203, end: 20040214
  6. BEER YEAST [Concomitant]
     Dates: start: 20031213, end: 20040214
  7. FOLIC ACID [Concomitant]
     Dates: start: 20030416, end: 20040214
  8. CALCIUM CARBONATE [Concomitant]
     Dates: start: 19990101, end: 20040214
  9. VITAMIN D [Concomitant]
     Dates: start: 19990101, end: 20040214

REACTIONS (1)
  - PNEUMONIA [None]
